FAERS Safety Report 18610741 (Version 1)
Quarter: 2020Q4

REPORT INFORMATION
  Report Type: Spontaneous
  Country: US (occurrence: US)
  Receive Date: 20201211
  Receipt Date: 20201211
  Transmission Date: 20210114
  Serious: Yes (Hospitalization)
  Sender: FDA-Public Use
  Company Number: None

PATIENT
  Age: 71 Year
  Sex: Female

DRUGS (6)
  1. ARMOUR THYROID 1 GRAIN [Concomitant]
  2. FULVESTRANT. [Suspect]
     Active Substance: FULVESTRANT
     Indication: BREAST CANCER FEMALE
     Dosage: ?          OTHER FREQUENCY:ONCE PER MONTH;?
     Route: 030
     Dates: start: 20200715
  3. MULTVITAMIN [Concomitant]
  4. VITAMIN C 500MG W/ROSE HIPS [Concomitant]
  5. ALBUTEROL INHALER [Concomitant]
     Active Substance: ALBUTEROL
  6. GAMMAGARD 20GM/200ML [Concomitant]

REACTIONS (3)
  - Oedema [None]
  - Protein total decreased [None]
  - Cellulitis [None]

NARRATIVE: CASE EVENT DATE: 20201211
